FAERS Safety Report 12892212 (Version 1)
Quarter: 2016Q4

REPORT INFORMATION
  Report Type: Spontaneous
  Country: US (occurrence: US)
  Receive Date: 20161026
  Receipt Date: 20161026
  Transmission Date: 20170207
  Serious: Yes (Death)
  Sender: FDA-Public Use
  Company Number: None

PATIENT
  Age: 18 Year
  Sex: Female
  Weight: 95.4 kg

DRUGS (10)
  1. VENTOLIN [Concomitant]
     Active Substance: ALBUTEROL SULFATE
  2. KEPPRA [Concomitant]
     Active Substance: LEVETIRACETAM
  3. ATIVAN [Concomitant]
     Active Substance: LORAZEPAM
  4. VERSED [Concomitant]
     Active Substance: MIDAZOLAM HYDROCHLORIDE
  5. CEREBYX [Concomitant]
     Active Substance: FOSPHENYTOIN SODIUM
  6. NOVOSEVEN [Concomitant]
     Active Substance: COAGULATION FACTOR VIIA RECOMBINANT HUMAN
  7. FOSCARNET [Concomitant]
     Active Substance: FOSCARNET
  8. ABATACEPT 750MG BRISTOL MYERS SQUIBB [Suspect]
     Active Substance: ABATACEPT
     Indication: APLASTIC ANAEMIA
     Dosage: ABATACEPT 750 MG - IV - 24H 100ML/HR
     Route: 042
     Dates: start: 20160804, end: 20160810
  9. ZEMURON [Concomitant]
     Active Substance: ROCURONIUM BROMIDE
  10. INTRALIPID [Concomitant]
     Active Substance: EGG PHOSPHOLIPIDS\GLYCERIN\SOYBEAN OIL

REACTIONS (7)
  - Respiratory acidosis [None]
  - Seizure [None]
  - Transplant failure [None]
  - Respiratory distress [None]
  - Sinus bradycardia [None]
  - Hypotension [None]
  - Metabolic acidosis [None]

NARRATIVE: CASE EVENT DATE: 20161017
